FAERS Safety Report 20590258 (Version 1)
Quarter: 2022Q1

REPORT INFORMATION
  Report Type: Spontaneous
  Country: IN (occurrence: IN)
  Receive Date: 20220314
  Receipt Date: 20220314
  Transmission Date: 20220423
  Serious: Yes (Hospitalization)
  Sender: FDA-Public Use
  Company Number: IN-PFIZER INC-2021300293

PATIENT
  Age: 66 Year
  Sex: Female

DRUGS (2)
  1. PALBOCICLIB [Suspect]
     Active Substance: PALBOCICLIB
     Indication: Breast cancer metastatic
     Dosage: 125 MG, CYCLIC (1X/DAY (21/28) X 3 MONTHS)
     Route: 048
     Dates: start: 20200901
  2. LETROZOLE [Concomitant]
     Active Substance: LETROZOLE
     Indication: Breast cancer metastatic
     Dosage: 2.5 MG, 1X/DAY ( X 3 MONTHS)

REACTIONS (9)
  - Platelet count decreased [Unknown]
  - White blood cell count decreased [Unknown]
  - Asthenia [Unknown]
  - Immune system disorder [Unknown]
  - SARS-CoV-2 test positive [Unknown]
  - Skin infection [Unknown]
  - Arthralgia [Unknown]
  - Crepitations [Unknown]
  - Inappropriate schedule of product administration [Unknown]
